FAERS Safety Report 7407584-X (Version None)
Quarter: 2011Q2

REPORT INFORMATION
  Report Type: 
  Country: None (occurrence: None)
  Receive Date: 20110405
  Receipt Date: 20110322
  Transmission Date: 20111010
  Serious: Yes (Death, Hospitalization)
  Sender: FDA-Public Use
  Company Number: 2011AL000014

PATIENT
  Age: 74 Year
  Sex: Male

DRUGS (7)
  1. TRIMETHOPRIM [Concomitant]
  2. FOLIC ACID [Concomitant]
  3. COLACE [Concomitant]
  4. FOLOTYN [Suspect]
     Indication: ANGIOIMMUNOBLASTIC T-CELL LYMPHOMA
     Dosage: 30 MG/M**2; IV
     Route: 042
     Dates: start: 20101220, end: 20110228
  5. FLUCONAZOLE [Concomitant]
  6. METOPROLOL [Concomitant]
  7. FAMOTIDINE [Concomitant]

REACTIONS (15)
  - PLATELET COUNT DECREASED [None]
  - BLOOD ALKALINE PHOSPHATASE INCREASED [None]
  - HISTIOCYTOSIS HAEMATOPHAGIC [None]
  - MUCOSAL INFLAMMATION [None]
  - BLOOD BILIRUBIN INCREASED [None]
  - ALANINE AMINOTRANSFERASE INCREASED [None]
  - DISSEMINATED INTRAVASCULAR COAGULATION [None]
  - FATIGUE [None]
  - PYREXIA [None]
  - ASPARTATE AMINOTRANSFERASE INCREASED [None]
  - FEBRILE NEUTROPENIA [None]
  - HEPATIC ENZYME INCREASED [None]
  - BLOOD LACTATE DEHYDROGENASE INCREASED [None]
  - HAEMOGLOBIN DECREASED [None]
  - JAUNDICE [None]
